FAERS Safety Report 10233522 (Version 2)
Quarter: 2014Q3

REPORT INFORMATION
  Report Type: Spontaneous
  Country: US (occurrence: US)
  Receive Date: 20140612
  Receipt Date: 20140702
  Transmission Date: 20150326
  Serious: Yes (Hospitalization)
  Sender: FDA-Public Use
  Company Number: US-009507513-1406USA004322

PATIENT
  Sex: Female
  Weight: 63.49 kg

DRUGS (7)
  1. SINGULAIR [Concomitant]
     Active Substance: MONTELUKAST SODIUM
  2. HYDROCHLOROTHIAZIDE. [Concomitant]
     Active Substance: HYDROCHLOROTHIAZIDE
  3. ALBUTEROL. [Concomitant]
     Active Substance: ALBUTEROL
  4. ZYRTEC [Concomitant]
     Active Substance: CETIRIZINE HYDROCHLORIDE
  5. ATENOLOL. [Concomitant]
     Active Substance: ATENOLOL
  6. WELLBUTRIN [Concomitant]
     Active Substance: BUPROPION HYDROCHLORIDE
  7. NUVARING [Suspect]
     Active Substance: ETHINYL ESTRADIOL\ETONOGESTREL
     Indication: CONTRACEPTION
     Dosage: 3 WKS IN, 1 WK OUT
     Route: 067
     Dates: start: 2007

REACTIONS (4)
  - Thrombolysis [Unknown]
  - Thrombectomy [Unknown]
  - Subclavian vein thrombosis [Not Recovered/Not Resolved]
  - Thrombolysis [Unknown]

NARRATIVE: CASE EVENT DATE: 20140602
